FAERS Safety Report 8388699-9 (Version None)
Quarter: 2012Q2

REPORT INFORMATION
  Report Type: 
  Country: None (occurrence: None)
  Receive Date: 20120527
  Receipt Date: 20120508
  Transmission Date: 20120825
  Serious: Yes (Other)
  Sender: FDA-Public Use
  Company Number: PHHY2012BE039499

PATIENT
  Sex: Female
  Weight: 70 kg

DRUGS (5)
  1. LEVOTHYROXINE SODIUM [Concomitant]
     Dosage: 100 UG, QD
     Route: 048
  2. SPASMOMEN [Concomitant]
  3. CLORAZEPATE DIPOTASSIUM [Suspect]
     Dosage: 15 MG, QD
  4. SANDOSTATIN LAR [Suspect]
     Indication: NEUROENDOCRINE TUMOUR
     Dosage: 30 MG, QMO
     Route: 030
     Dates: start: 20120413
  5. SPASMOMEN [Concomitant]
     Indication: ABDOMINAL PAIN

REACTIONS (11)
  - NAUSEA [None]
  - MALAISE [None]
  - DIZZINESS [None]
  - BLOOD PRESSURE INCREASED [None]
  - TREMOR [None]
  - VERTIGO [None]
  - HEADACHE [None]
  - ABDOMINAL PAIN [None]
  - FEELING ABNORMAL [None]
  - WEIGHT DECREASED [None]
  - FATIGUE [None]
